FAERS Safety Report 5335942-6 (Version None)
Quarter: 2007Q2

REPORT INFORMATION
  Report Type: 
  Country: None (occurrence: None)
  Receive Date: 20070301
  Receipt Date: 20060327
  Transmission Date: 20071010
  Serious: Yes (Hospitalization)
  Sender: FDA-Public Use
  Company Number: 002#1#2006-00085

PATIENT
  Age: 37 Year
  Sex: Female
  Weight: 54.4316 kg

DRUGS (4)
  1. REGLAN [Suspect]
     Indication: LACTATION DISORDER
     Dosage: 10 MG, 4 IN 1 D ORAL
     Route: 048
     Dates: start: 20060120, end: 20060322
  2. REGLAN [Suspect]
     Indication: LACTATION DISORDER
     Dosage: 10 MG, 4 IN 1 D ORAL
     Route: 048
     Dates: start: 20060327, end: 20060329
  3. REGLAN [Suspect]
     Indication: LACTATION DISORDER
     Dosage: 10 MG, 4 IN 1 D ORAL
     Route: 048
     Dates: start: 20060330, end: 20060401
  4. REGLAN [Suspect]
     Indication: LACTATION DISORDER
     Dosage: 10 MG, 4 IN 1 D ORAL
     Route: 048
     Dates: start: 20060402, end: 20060404

REACTIONS (4)
  - AKATHISIA [None]
  - ANXIETY [None]
  - DEPRESSION [None]
  - PANIC ATTACK [None]
